FAERS Safety Report 5943209-8 (Version None)
Quarter: 2008Q4

REPORT INFORMATION
  Report Type: 
  Country: None (occurrence: None)
  Receive Date: 20081106
  Receipt Date: 20081029
  Transmission Date: 20090506
  Serious: Yes (Hospitalization)
  Sender: FDA-Public Use
  Company Number: B0544035A

PATIENT
  Age: 40 Year
  Sex: Female
  Weight: 46 kg

DRUGS (2)
  1. KIVEXA [Suspect]
     Indication: HIV INFECTION
     Dosage: 1TAB PER DAY
     Route: 048
     Dates: start: 20080917, end: 20080923
  2. KALETRA [Concomitant]
     Indication: HIV INFECTION
     Dosage: 2TAB TWICE PER DAY
     Route: 048
     Dates: start: 20040921

REACTIONS (5)
  - DRUG HYPERSENSITIVITY [None]
  - INFLUENZA [None]
  - MYALGIA [None]
  - PYREXIA [None]
  - RESPIRATORY DISORDER [None]
